FAERS Safety Report 6871592-8 (Version None)
Quarter: 2010Q3

REPORT INFORMATION
  Report Type: 
  Country: None (occurrence: None)
  Receive Date: 20100723
  Receipt Date: 20100715
  Transmission Date: 20110219
  Serious: Yes (Hospitalization, Other)
  Sender: FDA-Public Use
  Company Number: US-GENZYME-FABR-1001384

PATIENT

DRUGS (3)
  1. FABRAZYME [Suspect]
     Indication: FABRY'S DISEASE
     Dosage: UNK UNK, UNK
     Route: 042
  2. FABRAZYME [Suspect]
     Dosage: 35 MG, Q2W
     Route: 042
     Dates: start: 20091120, end: 20100601
  3. FABRAZYME [Suspect]
     Dosage: 25 MG, Q3W
     Route: 042
     Dates: start: 20100601

REACTIONS (2)
  - CARDIOMYOPATHY [None]
  - VENTRICULAR TACHYCARDIA [None]
